FAERS Safety Report 7620549-8 (Version None)
Quarter: 2011Q3

REPORT INFORMATION
  Report Type: 
  Country: None (occurrence: None)
  Receive Date: 20110719
  Receipt Date: 20110715
  Transmission Date: 20111222
  Serious: Yes (Hospitalization)
  Sender: FDA-Public Use
  Company Number: US-PFIZER INC-2011153290

PATIENT
  Sex: Female
  Weight: 61.406 kg

DRUGS (10)
  1. METOPROLOL [Concomitant]
     Dosage: 50 MG, UNK
     Dates: start: 20081006
  2. LOPERAMIDE HYDROCHLORIDE [Concomitant]
     Dosage: 4 MG, UNK
     Dates: start: 20110629
  3. ZESTORETIC [Concomitant]
     Dosage: 12.5 MG, UNK
     Dates: start: 20081006
  4. FISH OIL [Concomitant]
     Dosage: UNK
     Dates: start: 20090709
  5. GLUCOSAMINE CHONDROITIN PM [Concomitant]
     Dosage: UNK
     Dates: start: 20090709
  6. CENTRUM SILVER [Concomitant]
     Dosage: UNK
     Dates: start: 20090709
  7. LIPITOR [Concomitant]
     Dosage: 20 MG, UNK
     Dates: start: 20070723
  8. ASCORBIC ACID [Concomitant]
     Dosage: 500 MG, UNK
     Dates: start: 20090709
  9. SUNITINIB MALATE [Suspect]
     Indication: THYROID CANCER
     Dosage: 37.5 MG, 1X/DAY
     Route: 048
     Dates: start: 20110610
  10. SYNTHROID [Concomitant]
     Dosage: 125 UG, UNK
     Dates: start: 20071023

REACTIONS (3)
  - OESOPHAGITIS [None]
  - HYPONATRAEMIA [None]
  - DECREASED APPETITE [None]
